FAERS Safety Report 19143625 (Version 1)
Quarter: 2021Q2

REPORT INFORMATION
  Report Type: Other
  Country: US (occurrence: US)
  Receive Date: 20210415
  Receipt Date: 20210415
  Transmission Date: 20210717
  Serious: Yes (Other)
  Sender: FDA-Public Use
  Company Number: US-ROCHE-2806163

PATIENT
  Age: 50 Year
  Sex: Female
  Weight: 154.36 kg

DRUGS (2)
  1. OCREVUS [Suspect]
     Active Substance: OCRELIZUMAB
     Dosage: DATE OF TREATMENT: 27/DEC/2018
     Route: 042
     Dates: start: 20181213, end: 20181227
  2. OCREVUS [Suspect]
     Active Substance: OCRELIZUMAB
     Indication: MULTIPLE SCLEROSIS
     Dosage: DATE OF TREATMENT:  20/JAN/2020, 31/JUL/2020, 14/JAN/2021
     Route: 042
     Dates: start: 20190614

REACTIONS (2)
  - COVID-19 pneumonia [Not Recovered/Not Resolved]
  - Sinusitis [Unknown]

NARRATIVE: CASE EVENT DATE: 20210323
